FAERS Safety Report 21530285 (Version 1)
Quarter: 2022Q4

REPORT INFORMATION
  Report Type: Spontaneous
  Country: US (occurrence: None)
  Receive Date: 20221028
  Receipt Date: 20221028
  Transmission Date: 20230113
  Serious: Yes (Other)
  Sender: FDA-Public Use
  Company Number: None

PATIENT
  Age: 51 Year
  Sex: Female
  Weight: 71.55 kg

DRUGS (1)
  1. MAGNESIUM CITRATE [Suspect]
     Active Substance: MAGNESIUM CITRATE
     Dates: start: 20220217, end: 20220217

REACTIONS (3)
  - Oropharyngeal pain [None]
  - Malaise [None]
  - Vomiting [None]

NARRATIVE: CASE EVENT DATE: 20220218
